FAERS Safety Report 4686073-X (Version None)
Quarter: 2005Q2

REPORT INFORMATION
  Report Type: 
  Country: None (occurrence: None)
  Receive Date: 20050609
  Receipt Date: 20050310
  Transmission Date: 20051028
  Serious: No
  Sender: FDA-Public Use
  Company Number: US-AMGEN-US120148

PATIENT
  Sex: Female

DRUGS (3)
  1. ENBREL [Suspect]
     Indication: PSORIASIS
     Route: 058
     Dates: start: 20041204
  2. ENBREL [Suspect]
     Dates: start: 20050420
  3. CLOBETASOL [Concomitant]
     Route: 061

REACTIONS (4)
  - BLUE TOE SYNDROME [None]
  - CYANOSIS [None]
  - FEELING COLD [None]
  - RAYNAUD'S PHENOMENON [None]
